FAERS Safety Report 15103527 (Version 1)
Quarter: 2018Q3

REPORT INFORMATION
  Report Type: Spontaneous
  Country: US (occurrence: US)
  Receive Date: 20180703
  Receipt Date: 20180703
  Transmission Date: 20181010
  Serious: No
  Sender: FDA-Public Use
  Company Number: US-GLAXOSMITHKLINE-US2018116313

PATIENT
  Age: 33 Year
  Sex: Female

DRUGS (1)
  1. EXCEDRIN MIGRAINE [Suspect]
     Active Substance: ACETAMINOPHEN\ASPIRIN\CAFFEINE
     Indication: MIGRAINE
     Dosage: 1 DF, UNK
     Dates: start: 20180627, end: 20180627

REACTIONS (8)
  - Nervousness [Unknown]
  - Retching [Unknown]
  - Palpitations [Unknown]
  - Anxiety [Unknown]
  - Abdominal pain upper [Unknown]
  - Epigastric discomfort [Unknown]
  - Insomnia [Unknown]
  - Heart rate increased [Unknown]

NARRATIVE: CASE EVENT DATE: 20180627
